FAERS Safety Report 11908062 (Version 1)
Quarter: 2016Q1

REPORT INFORMATION
  Report Type: Spontaneous
  Country: US (occurrence: US)
  Receive Date: 20160111
  Receipt Date: 20160111
  Transmission Date: 20160526
  Serious: Yes (Death, Other)
  Sender: FDA-Public Use
  Company Number: US-BAYER-2015-498886

PATIENT
  Age: 59 Year
  Sex: Male

DRUGS (1)
  1. MOXIFLOXACIN IV [Suspect]
     Active Substance: MOXIFLOXACIN
     Indication: MYCOBACTERIAL INFECTION

REACTIONS (6)
  - Drug ineffective [None]
  - Endocarditis [Fatal]
  - Respiratory failure [None]
  - Off label use [None]
  - Multiple organ dysfunction syndrome [None]
  - Shock [None]
